FAERS Safety Report 7242255-4 (Version None)
Quarter: 2011Q1

REPORT INFORMATION
  Report Type: 
  Country: None (occurrence: None)
  Receive Date: 20110124
  Receipt Date: 20110117
  Transmission Date: 20110831
  Serious: Yes (Other)
  Sender: FDA-Public Use
  Company Number: FR-AMGEN-FRASP2011002295

PATIENT
  Sex: Female

DRUGS (4)
  1. ETANERCEPT [Suspect]
  2. ETANERCEPT [Suspect]
     Indication: PSORIATIC ARTHROPATHY
     Dosage: UNK
  3. ADALIMUMAB [Suspect]
     Indication: PSORIATIC ARTHROPATHY
  4. ADALIMUMAB [Suspect]

REACTIONS (3)
  - WEIGHT DECREASED [None]
  - TUBERCULOSIS [None]
  - PYREXIA [None]
